FAERS Safety Report 5893256 (Version 4)
Quarter: 2012Q4

REPORT INFORMATION
  Report Type: 
  Country: GR (occurrence: GR)
  Receive Date: 20051007
  Receipt Date: 20120904
  Transmission Date: 20130627
  Serious: Yes (Hospitalization, Disabling, Other)
  Sender: FDA-Public Use
  Company Number: GR-JNJFOC-20050906479

PATIENT
  Age: 38 Year
  Sex: Male
  Weight: 80 kg

DRUGS (5)
  1. REMICADE [Suspect]
     Indication: CROHN^S DISEASE
     Dosage: 3rd infusion.
     Route: 042
     Dates: start: 20050415, end: 20050415
  2. REMICADE [Suspect]
     Indication: CROHN^S DISEASE
     Dosage: 2nd infusion.
     Route: 042
     Dates: start: 20050318, end: 20050318
  3. REMICADE [Suspect]
     Indication: CROHN^S DISEASE
     Dosage: 1st infusion.
     Route: 042
     Dates: start: 20050216, end: 20050216
  4. AZATHIOPRINE [Concomitant]
     Indication: CROHN^S DISEASE
     Dosage: Years ago.
     Route: 048
  5. SALOFALK [Concomitant]
     Indication: CROHN^S DISEASE
     Dosage: Years ago.
     Route: 048

REACTIONS (9)
  - Sensory loss [Recovering/Resolving]
  - Cholecystitis acute [Recovering/Resolving]
  - Paraplegia [Recovering/Resolving]
  - Bladder disorder [Recovering/Resolving]
  - Anorectal disorder [Recovering/Resolving]
  - Hypoaesthesia [Recovering/Resolving]
  - Infusion related reaction [Recovering/Resolving]
  - Aphonia [Not Recovered/Not Resolved]
  - Myelitis transverse [Recovering/Resolving]
